FAERS Safety Report 25190475 (Version 1)
Quarter: 2025Q2

REPORT INFORMATION
  Report Type: Spontaneous
  Country: US (occurrence: US)
  Receive Date: 20250411
  Receipt Date: 20250411
  Transmission Date: 20250717
  Serious: Yes (Death, Hospitalization)
  Sender: JOHNSON AND JOHNSON
  Company Number: US-JNJFOC-20250409923

PATIENT
  Sex: Male
  Weight: 46.8 kg

DRUGS (26)
  1. AMIVANTAMAB [Suspect]
     Active Substance: AMIVANTAMAB
     Indication: Neoplasm malignant
     Route: 065
     Dates: start: 20250311, end: 20250312
  2. DENIKITUG [Suspect]
     Active Substance: DENIKITUG
     Indication: Neoplasm
     Dates: start: 20241016, end: 20241016
  3. DENIKITUG [Suspect]
     Active Substance: DENIKITUG
     Dates: start: 20241106, end: 20241106
  4. DENIKITUG [Suspect]
     Active Substance: DENIKITUG
     Dates: start: 20241127, end: 20241127
  5. DENIKITUG [Suspect]
     Active Substance: DENIKITUG
     Dates: start: 20241218, end: 20241218
  6. DENIKITUG [Suspect]
     Active Substance: DENIKITUG
     Dates: start: 20250108, end: 20250108
  7. DENIKITUG [Suspect]
     Active Substance: DENIKITUG
     Dates: start: 20250129, end: 20250129
  8. DENIKITUG [Suspect]
     Active Substance: DENIKITUG
     Dates: start: 20250219, end: 20250219
  9. DENIKITUG [Suspect]
     Active Substance: DENIKITUG
     Dates: start: 20240925, end: 20240925
  10. CHOLECALCIFEROL [Concomitant]
     Active Substance: CHOLECALCIFEROL
     Dates: start: 201606
  11. ATORVASTATIN [Concomitant]
     Active Substance: ATORVASTATIN
     Dates: start: 20231124
  12. ASPIRIN [Concomitant]
     Active Substance: ASPIRIN
  13. EZETIMIBE [Concomitant]
     Active Substance: EZETIMIBE
     Dates: start: 20240218
  14. METOPROLOL SUCCINATE [Concomitant]
     Active Substance: METOPROLOL SUCCINATE
     Dates: start: 20240218
  15. DOCUSATE [Concomitant]
     Active Substance: DOCUSATE
     Dates: start: 20240912
  16. ACETAMINOPHEN\HYDROCODONE [Concomitant]
     Active Substance: ACETAMINOPHEN\HYDROCODONE
     Dates: start: 20240912
  17. POLYETHYLENE GLYCOL 3350 [Concomitant]
     Active Substance: POLYETHYLENE GLYCOL 3350
     Dates: start: 20240912
  18. SENNOSIDES A AND B [Concomitant]
     Active Substance: SENNOSIDES A AND B
     Dates: start: 20240912
  19. ALGELDRATE\MAGNESIUM HYDROXIDE [Concomitant]
     Active Substance: ALGELDRATE\MAGNESIUM HYDROXIDE
     Dates: start: 20241016
  20. SIMETHICONE (DIMETHICONE) [Concomitant]
     Active Substance: DIMETHICONE
     Dates: start: 20241016
  21. ROXICODONE [Concomitant]
     Active Substance: OXYCODONE HYDROCHLORIDE
     Dates: start: 20241121
  22. OXYCONTIN [Concomitant]
     Active Substance: OXYCODONE HYDROCHLORIDE
     Dates: start: 20241125
  23. LACTULOSE [Concomitant]
     Active Substance: LACTULOSE
     Dates: start: 20241126
  24. MORPHINE [Concomitant]
     Active Substance: MORPHINE
     Dates: start: 20241216
  25. DESMOPRESSIN [Concomitant]
     Active Substance: DESMOPRESSIN
     Dates: start: 20241231
  26. VITAMINS [Concomitant]
     Active Substance: VITAMINS
     Dates: start: 201606

REACTIONS (1)
  - Pneumonitis [Fatal]

NARRATIVE: CASE EVENT DATE: 20250314
